FAERS Safety Report 5595946-5 (Version None)
Quarter: 2008Q1

REPORT INFORMATION
  Report Type: 
  Country: None (occurrence: None)
  Receive Date: 20080118
  Receipt Date: 20080102
  Transmission Date: 20080703
  Serious: Yes (Life-Threatening, Hospitalization, Disabling, Other)
  Sender: FDA-Public Use
  Company Number: CH-AMGEN-UK257069

PATIENT
  Sex: Male
  Weight: 65 kg

DRUGS (1)
  1. NEUPOGEN [Suspect]
     Indication: NEUTROPENIA
     Route: 058
     Dates: start: 20020319, end: 20071125

REACTIONS (3)
  - LUNG DISORDER [None]
  - PNEUMONIA [None]
  - PULMONARY FIBROSIS [None]
